FAERS Safety Report 8759244 (Version 1)
Quarter: 2012Q4

REPORT INFORMATION
  Report Type: 
  Country: US (occurrence: US)
  Receive Date: 20120829
  Receipt Date: 20120829
  Transmission Date: 20130627
  Serious: No
  Sender: FDA-Public Use
  Company Number: US-009507513-1208USA010983

PATIENT
  Sex: Male

DRUGS (2)
  1. LOTRIMIN AF [Suspect]
     Indication: PRURITUS
     Route: 061
  2. LOTRIMIN AF [Suspect]
     Indication: BURNING SENSATION

REACTIONS (1)
  - Drug ineffective [Unknown]
